FAERS Safety Report 4498823-6 (Version None)
Quarter: 2004Q4

REPORT INFORMATION
  Report Type: 
  Country: None (occurrence: None)
  Receive Date: 20041111
  Receipt Date: 20040406
  Transmission Date: 20050328
  Serious: No
  Sender: FDA-Public Use
  Company Number: 200411882JP

PATIENT
  Age: 24 Year
  Sex: Female
  Weight: 57.9 kg

DRUGS (10)
  1. ARAVA [Suspect]
     Indication: RHEUMATOID ARTHRITIS
     Route: 048
     Dates: start: 20040310, end: 20040521
  2. PREDNISOLONE [Concomitant]
     Indication: RHEUMATOID ARTHRITIS
     Route: 048
     Dates: end: 20040520
  3. RIMATIL [Concomitant]
     Indication: RHEUMATOID ARTHRITIS
     Route: 048
     Dates: end: 20040309
  4. RHEUMATREX [Concomitant]
     Indication: RHEUMATOID ARTHRITIS
     Dosage: DOSE: 4 MG/WEEK
     Route: 048
     Dates: end: 20040308
  5. OSTELUC [Concomitant]
     Indication: RHEUMATOID ARTHRITIS
     Route: 048
  6. SELBEX [Concomitant]
     Indication: GASTRITIS
     Route: 048
     Dates: end: 20040521
  7. SELBEX [Concomitant]
     Indication: PROPHYLAXIS
     Route: 048
     Dates: end: 20040521
  8. GASTER [Concomitant]
     Indication: GASTRITIS
     Route: 048
  9. GASTER [Concomitant]
     Indication: PROPHYLAXIS
     Route: 048
  10. PREDONINE [Concomitant]
     Indication: RHEUMATOID ARTHRITIS
     Route: 048
     Dates: start: 20040521

REACTIONS (8)
  - ANAEMIA [None]
  - BLOOD PRESSURE ORTHOSTATIC DECREASED [None]
  - DEPRESSED LEVEL OF CONSCIOUSNESS [None]
  - FALL [None]
  - NASOPHARYNGITIS [None]
  - PROTEIN URINE PRESENT [None]
  - SYNCOPE [None]
  - UPPER RESPIRATORY TRACT INFECTION [None]
